FAERS Safety Report 6148583-8 (Version None)
Quarter: 2009Q2

REPORT INFORMATION
  Report Type: 
  Country: None (occurrence: None)
  Receive Date: 20090406
  Receipt Date: 20090406
  Transmission Date: 20091009
  Serious: No
  Sender: FDA-Public Use
  Company Number: None

PATIENT
  Sex: Female
  Weight: 57.6068 kg

DRUGS (2)
  1. MELOXICAM [Suspect]
     Indication: MUSCULOSKELETAL PAIN
     Dosage: ONE DAILY PO
     Route: 048
     Dates: start: 20090105, end: 20090107
  2. MELOXICAM [Suspect]
     Indication: PAIN IN EXTREMITY
     Dosage: ONE DAILY PO
     Route: 048
     Dates: start: 20090105, end: 20090107

REACTIONS (3)
  - BLISTER [None]
  - OCULAR ICTERUS [None]
  - PERIORBITAL DISORDER [None]
